FAERS Safety Report 4977445-4 (Version None)
Quarter: 2006Q2

REPORT INFORMATION
  Report Type: 
  Country: None (occurrence: None)
  Receive Date: 20060413
  Receipt Date: 20060401
  Transmission Date: 20061013
  Serious: Yes (Other)
  Sender: FDA-Public Use
  Company Number: PHBS2006CA04560

PATIENT
  Age: 1 Year
  Sex: Female

DRUGS (6)
  1. METOPROLOL TARTRATE [Suspect]
     Indication: HYPERTENSION
     Dosage: SEE  IMAGE
  2. HYDROCHLOROTHIAZIDE [Suspect]
     Indication: HYPERTENSION
  3. AMLODIPINE [Suspect]
     Dosage: 0.5 MG/KG/DAY
  4. SPIRONOLACTONE [Suspect]
  5. ENALAPRIL MALEATE [Suspect]
  6. MINOXIDIL (NGX) (MINOXIDIL) [Suspect]

REACTIONS (14)
  - AORTIC ANEURYSM REPAIR [None]
  - ARTERIAL BYPASS OPERATION [None]
  - ARTERIAL RESTENOSIS [None]
  - BLOOD PRESSURE INADEQUATELY CONTROLLED [None]
  - DYSPLASIA [None]
  - HYPERTENSION [None]
  - HYPERTRICHOSIS [None]
  - PROTEINURIA [None]
  - RENAL ARTERY STENOSIS [None]
  - RENAL FAILURE ACUTE [None]
  - RENAL TRANSPLANT [None]
  - RENIN INCREASED [None]
  - VASCULAR PSEUDOANEURYSM [None]
  - VENTRICULAR HYPERTROPHY [None]
